FAERS Safety Report 7781250-3 (Version None)
Quarter: 2011Q3

REPORT INFORMATION
  Report Type: 
  Country: None (occurrence: None)
  Receive Date: 20110927
  Receipt Date: 20110923
  Transmission Date: 20111222
  Serious: Yes (Hospitalization, Other)
  Sender: FDA-Public Use
  Company Number: IT-ABBOTT-11P-083-0854537-00

PATIENT
  Sex: Male

DRUGS (2)
  1. EN [Suspect]
     Indication: PERSONALITY DISORDER
     Dosage: 20ML TOTAL
     Route: 048
     Dates: start: 20110823, end: 20110823
  2. DEPAKENE [Suspect]
     Indication: PRODUCT USED FOR UNKNOWN INDICATION
     Dosage: 45 UNITS TOTAL
     Route: 048
     Dates: start: 20110823, end: 20110823

REACTIONS (4)
  - BRADYCARDIA [None]
  - SOPOR [None]
  - INTENTIONAL SELF-INJURY [None]
  - OVERDOSE [None]
